FAERS Safety Report 8959063 (Version 2)
Quarter: 2014Q1

REPORT INFORMATION
  Report Type: Spontaneous
  Country: US (occurrence: US)
  Receive Date: 20121212
  Receipt Date: 20140108
  Transmission Date: 20141002
  Serious: Yes (Hospitalization, Other)
  Sender: FDA-Public Use
  Company Number: US-BAYER-2012-128319

PATIENT
  Age: 32 Year
  Sex: Female

DRUGS (4)
  1. YASMIN [Suspect]
     Indication: CONTRACEPTION
  2. YAZ [Suspect]
     Indication: CONTRACEPTION
  3. SYNTHROID [Concomitant]
     Dosage: 75 TO 300 MCG
     Dates: start: 20030508, end: 20060721
  4. METFORMIN [Concomitant]
     Dosage: 500 MG, UNK
     Dates: start: 20050113, end: 20060421

REACTIONS (8)
  - Cholelithiasis [None]
  - Cholecystitis chronic [None]
  - Injury [None]
  - Pain [None]
  - General physical health deterioration [None]
  - Fear of disease [None]
  - Emotional distress [None]
  - Pain [None]
